FAERS Safety Report 4835471-X (Version None)
Quarter: 2005Q4

REPORT INFORMATION
  Report Type: 
  Country: None (occurrence: None)
  Receive Date: 20051122
  Receipt Date: 20051122
  Transmission Date: 20060501
  Serious: Yes (Other)
  Sender: FDA-Public Use
  Company Number: None

PATIENT
  Age: 56 Year
  Sex: Male
  Weight: 113 kg

DRUGS (1)
  1. PAMIDRONATE     3 MG/ML   10 ML     BEDFORD LABS [Suspect]
     Indication: HYPERCALCAEMIA
     Dosage: 90 MG    ONE-TIME   IV   (IN D5/0.45% NACL 250 ML)
     Route: 042
     Dates: start: 20051113, end: 20051113

REACTIONS (4)
  - ABDOMINAL PAIN [None]
  - HYPERHIDROSIS [None]
  - INFUSION RELATED REACTION [None]
  - THROAT TIGHTNESS [None]
